FAERS Safety Report 8183863-6 (Version None)
Quarter: 2012Q1

REPORT INFORMATION
  Report Type: 
  Country: None (occurrence: None)
  Receive Date: 20120305
  Receipt Date: 20120229
  Transmission Date: 20120608
  Serious: Yes (Other)
  Sender: FDA-Public Use
  Company Number: US-ROCHE-1044460

PATIENT
  Sex: Female
  Weight: 46.399 kg

DRUGS (1)
  1. BONIVA [Suspect]
     Indication: PRODUCT USED FOR UNKNOWN INDICATION
     Route: 065

REACTIONS (5)
  - PELVIC FRACTURE [None]
  - SPINAL OSTEOARTHRITIS [None]
  - HIP FRACTURE [None]
  - OSTEOPENIA [None]
  - COMPRESSION FRACTURE [None]
